FAERS Safety Report 9206554 (Version 1)
Quarter: 2013Q2

REPORT INFORMATION
  Report Type: Spontaneous
  Country: TR (occurrence: None)
  Receive Date: 20130401
  Receipt Date: 20130401
  Transmission Date: 20140414
  Serious: Yes (Hospitalization)
  Sender: FDA-Public Use
  Company Number: SYM-2013-02124

PATIENT
  Age: 55 Year
  Sex: Male

DRUGS (1)
  1. BUPROPION HYDROCHLORIDE (BUPROPION HYDROCHLORIDE) (BUPROPION HYDROCHLORIDE) [Suspect]
     Route: 048

REACTIONS (7)
  - Thrombotic thrombocytopenic purpura [None]
  - Malaise [None]
  - Renal failure acute [None]
  - Confusional state [None]
  - Diarrhoea [None]
  - Ocular icterus [None]
  - Disorientation [None]
